FAERS Safety Report 10566587 (Version 3)
Quarter: 2016Q3

REPORT INFORMATION
  Report Type: Spontaneous
  Country: FR (occurrence: FR)
  Receive Date: 20141105
  Receipt Date: 20160808
  Transmission Date: 20161109
  Serious: Yes (Hospitalization)
  Sender: FDA-Public Use
  Company Number: FR-PFIZER INC-2014303231

PATIENT
  Age: 19 Year
  Sex: Female

DRUGS (13)
  1. BACLOFEN. [Suspect]
     Active Substance: BACLOFEN
     Dosage: 10 MG, 3X/DAY
     Route: 048
     Dates: start: 20140724
  2. DEROXAT [Suspect]
     Active Substance: PAROXETINE HYDROCHLORIDE
     Dosage: 20 MG, 1X/DAY
     Route: 048
     Dates: start: 20140617
  3. LOVENOX [Concomitant]
     Active Substance: ENOXAPARIN SODIUM
     Dosage: UNK
     Dates: start: 20140710, end: 20141008
  4. LYRICA [Suspect]
     Active Substance: PREGABALIN
     Dosage: 250 MG, 1X/DAY
     Route: 048
     Dates: start: 20140710, end: 20141011
  5. XANAX [Suspect]
     Active Substance: ALPRAZOLAM
     Dosage: 25 MG, 1X/DAY
     Route: 048
     Dates: start: 20140816
  6. IMOVANE [Suspect]
     Active Substance: ZOPICLONE
     Dosage: 1 DF, DAILY
     Route: 048
     Dates: start: 20140710
  7. FORLAX [Suspect]
     Active Substance: POLYETHYLENE GLYCOL 4000
     Dosage: 2 DF, DAILY
     Route: 048
     Dates: start: 20140710
  8. VESICARE [Concomitant]
     Active Substance: SOLIFENACIN SUCCINATE
     Dosage: UNK
  9. DOMPERIDONE [Suspect]
     Active Substance: DOMPERIDONE
     Dosage: 10 MG, 1X/DAY
     Route: 048
     Dates: start: 20140715
  10. GUTRON [Suspect]
     Active Substance: MIDODRINE
     Dosage: 4 DF, 3X/DAY
     Route: 048
     Dates: start: 20140710
  11. OXYCODONE [Concomitant]
     Active Substance: OXYCODONE
     Dosage: UNK
  12. FUMAFER [Concomitant]
     Active Substance: FERROUS FUMARATE
     Dosage: UNK
  13. PARACETAMOL [Suspect]
     Active Substance: ACETAMINOPHEN
     Dosage: UNK
     Route: 048
     Dates: start: 20140710

REACTIONS (1)
  - Thrombocytopenia [Unknown]

NARRATIVE: CASE EVENT DATE: 20141008
